FAERS Safety Report 6153886-7 (Version None)
Quarter: 2009Q2

REPORT INFORMATION
  Report Type: 
  Country: None (occurrence: None)
  Receive Date: 20090414
  Receipt Date: 20090408
  Transmission Date: 20091009
  Serious: Yes (Hospitalization, Other)
  Sender: FDA-Public Use
  Company Number: US-JNJFOC-20090402579

PATIENT
  Sex: Male
  Weight: 81.65 kg

DRUGS (1)
  1. RISPERDAL [Suspect]
     Indication: SCHIZOPHRENIA
     Route: 048

REACTIONS (5)
  - BREAST SWELLING [None]
  - DELUSION [None]
  - HOSPITALISATION [None]
  - PROGESTERONE INCREASED [None]
  - TREMOR [None]
